FAERS Safety Report 9618417 (Version 1)
Quarter: 2013Q4

REPORT INFORMATION
  Report Type: Spontaneous
  Country: US (occurrence: US)
  Receive Date: 20131014
  Receipt Date: 20131014
  Transmission Date: 20140711
  Serious: No
  Sender: FDA-Public Use
  Company Number: US-BAYER-2013-122192

PATIENT
  Age: 61 Year
  Sex: Male

DRUGS (10)
  1. BETASERON [Suspect]
     Route: 051
  2. AMPYRA [Suspect]
     Dosage: 1 DF, BID
     Route: 048
     Dates: start: 20130416
  3. POTASSIUM CHLORIDE [Concomitant]
  4. ATORVASTATIN CALCIUM [Concomitant]
  5. PARACETAMOL W/TRAMADOL HYDROCHLORIDE [Concomitant]
  6. CYCLOBENZAPRINE HYDROCHLORIDE [Concomitant]
  7. METOPROLOL SUCCINATE [Concomitant]
  8. HYDROCHLOROTHIAZIDE [Concomitant]
  9. BACLOFEN [Concomitant]
  10. IBUPROFEN [Concomitant]

REACTIONS (1)
  - Injection site pain [None]
